FAERS Safety Report 26115750 (Version 1)
Quarter: 2025Q4

REPORT INFORMATION
  Report Type: Other
  Country: EU (occurrence: EU)
  Receive Date: 20251203
  Receipt Date: 20251203
  Transmission Date: 20260118
  Serious: Yes (Life-Threatening, Hospitalization)
  Sender: ZYDUS PHARM
  Company Number: None

PATIENT

DRUGS (4)
  1. ARIPIPRAZOLE [Interacting]
     Active Substance: ARIPIPRAZOLE
     Indication: Suicide attempt
     Dosage: UNK
     Route: 048
     Dates: start: 20250218, end: 20250218
  2. FLUOXETINE [Interacting]
     Active Substance: FLUOXETINE HYDROCHLORIDE
     Indication: Suicide attempt
     Dosage: UNK
     Route: 048
     Dates: start: 20250218, end: 20250218
  3. CLONAZEPAM [Interacting]
     Active Substance: CLONAZEPAM
     Indication: Suicide attempt
     Dosage: UNK
     Route: 048
     Dates: start: 20250218, end: 20250218
  4. LORAZEPAM [Interacting]
     Active Substance: LORAZEPAM
     Indication: Suicide attempt
     Dosage: UNK
     Route: 048
     Dates: start: 20250218, end: 20250218

REACTIONS (4)
  - Septic shock [Recovered/Resolved]
  - Depressed level of consciousness [Recovered/Resolved]
  - Pneumonia aspiration [Recovered/Resolved]
  - Intentional overdose [Recovered/Resolved]

NARRATIVE: CASE EVENT DATE: 20250218
